FAERS Safety Report 9069754 (Version 2)
Quarter: 2013Q1

REPORT INFORMATION
  Report Type: Report from Study
  Country: US (occurrence: US)
  Receive Date: 20130215
  Receipt Date: 20130218
  Transmission Date: 20140127
  Serious: Yes (Other)
  Sender: FDA-Public Use
  Company Number: US-ABBOTT-13P-163-1048349-00

PATIENT
  Sex: Female
  Weight: 40.86 kg

DRUGS (7)
  1. HUMIRA [Suspect]
     Indication: JUVENILE IDIOPATHIC ARTHRITIS
     Dates: start: 201208, end: 201210
  2. HUMIRA [Suspect]
     Dates: start: 201210
  3. METHOTREXATE [Concomitant]
     Indication: JUVENILE IDIOPATHIC ARTHRITIS
  4. LEUCOVORIN [Concomitant]
     Indication: JUVENILE IDIOPATHIC ARTHRITIS
  5. CELEBREX [Concomitant]
     Indication: JUVENILE IDIOPATHIC ARTHRITIS
  6. PLAQUENIL [Concomitant]
     Indication: JUVENILE IDIOPATHIC ARTHRITIS
  7. FOLIC ACID [Concomitant]
     Indication: JUVENILE IDIOPATHIC ARTHRITIS

REACTIONS (10)
  - Somnolence [Not Recovered/Not Resolved]
  - Platelet count decreased [Not Recovered/Not Resolved]
  - Enuresis [Recovered/Resolved]
  - Fatigue [Recovered/Resolved]
  - Juvenile idiopathic arthritis [Not Recovered/Not Resolved]
  - Weight decreased [Recovered/Resolved]
  - Skin lesion [Recovered/Resolved]
  - Pyrexia [Recovered/Resolved]
  - Stomatitis [Recovered/Resolved]
  - Sinusitis [Recovered/Resolved]
